FAERS Safety Report 5811991-6 (Version None)
Quarter: 2008Q3

REPORT INFORMATION
  Report Type: 
  Country: None (occurrence: None)
  Receive Date: 20080716
  Receipt Date: 20080704
  Transmission Date: 20090109
  Serious: Yes (Other)
  Sender: FDA-Public Use
  Company Number: DE-BAYER-200816161GPV

PATIENT
  Age: 57 Year
  Sex: Female
  Weight: 60 kg

DRUGS (2)
  1. AVALOX 400 [Suspect]
     Indication: BRONCHOPNEUMONIA
     Dosage: TOTAL DAILY DOSE: 400 MG  UNIT DOSE: 400 MG
     Route: 048
     Dates: start: 20071212, end: 20071212
  2. ANTICOAGULANT (UNSPECIFIED) [Concomitant]
     Indication: ANTICOAGULANT THERAPY
     Route: 065

REACTIONS (7)
  - DYSPHONIA [None]
  - HYPERGLYCAEMIA [None]
  - INTERNATIONAL NORMALISED RATIO INCREASED [None]
  - MYALGIA [None]
  - PALPITATIONS [None]
  - PROTHROMBIN TIME PROLONGED [None]
  - RESTLESSNESS [None]
